FAERS Safety Report 13923211 (Version 1)
Quarter: 2017Q3

REPORT INFORMATION
  Report Type: Spontaneous
  Country: US (occurrence: None)
  Receive Date: 20170830
  Receipt Date: 20170830
  Transmission Date: 20171127
  Serious: Yes (Life-Threatening, Hospitalization)
  Sender: FDA-Public Use
  Company Number: None

PATIENT
  Age: 62 Year
  Sex: Male
  Weight: 98.43 kg

DRUGS (2)
  1. OXYCODONE [Suspect]
     Active Substance: OXYCODONE
     Indication: PAIN
     Route: 048
     Dates: start: 20170826, end: 20170827
  2. OXYCODONE [Suspect]
     Active Substance: OXYCODONE
     Indication: PANCREATITIS
     Route: 048
     Dates: start: 20170826, end: 20170827

REACTIONS (9)
  - Sedation [None]
  - Hyperhidrosis [None]
  - Confusional state [None]
  - Chills [None]
  - Pallor [None]
  - Refusal of treatment by patient [None]
  - Tremor [None]
  - Miosis [None]
  - Overdose [None]

NARRATIVE: CASE EVENT DATE: 20170827
